FAERS Safety Report 8233911-X (Version None)
Quarter: 2012Q1

REPORT INFORMATION
  Report Type: 
  Country: None (occurrence: None)
  Receive Date: 20120307
  Receipt Date: 20110520
  Transmission Date: 20120608
  Serious: Yes (Other)
  Sender: FDA-Public Use
  Company Number: PHHY2011US48081

PATIENT
  Sex: Female

DRUGS (1)
  1. AFINITOR [Suspect]
     Indication: NEUROENDOCRINE TUMOUR
     Dosage: ORAL
     Route: 048

REACTIONS (4)
  - HYPERTENSION [None]
  - BLOOD GLUCOSE INCREASED [None]
  - RESPIRATORY TRACT INFECTION [None]
  - BLOOD SODIUM INCREASED [None]
